FAERS Safety Report 10381813 (Version 2)
Quarter: 2014Q3

REPORT INFORMATION
  Report Type: Spontaneous
  Country: FR (occurrence: None)
  Receive Date: 20140811
  Receipt Date: 20140818
  Transmission Date: 20150326
  Serious: Yes (Life-Threatening, Other)
  Sender: FDA-Public Use
  Company Number: 2014FR005826

PATIENT
  Age: 72 Year
  Sex: Male
  Weight: 120 kg

DRUGS (2)
  1. FIRMAGON [Suspect]
     Active Substance: DEGARELIX ACETATE
     Indication: PRODUCT USED FOR UNKNOWN INDICATION
  2. ELIGARD [Suspect]
     Active Substance: LEUPROLIDE ACETATE
     Indication: PROSTATE CANCER
     Dosage: 1 INJECTION EVERY 6 MONTHS, SUBCUTANEOUS
     Route: 058
     Dates: start: 201307, end: 20140204

REACTIONS (6)
  - Condition aggravated [None]
  - No therapeutic response [None]
  - Drug resistance [None]
  - Prostatic specific antigen increased [None]
  - Blood testosterone increased [None]
  - Prostate cancer [None]

NARRATIVE: CASE EVENT DATE: 20140527
